FAERS Safety Report 24236464 (Version 1)
Quarter: 2024Q3

REPORT INFORMATION
  Report Type: Spontaneous
  Country: CN (occurrence: CN)
  Receive Date: 20240822
  Receipt Date: 20240822
  Transmission Date: 20241017
  Serious: Yes (Hospitalization)
  Sender: ABBVIE
  Company Number: CN-TAKEDA-2024TUS083060

PATIENT
  Age: 57 Year
  Sex: Female
  Weight: 60 kg

DRUGS (3)
  1. LEUPROLIDE ACETATE [Suspect]
     Active Substance: ISOPROPYL ALCOHOL\LEUPROLIDE ACETATE
     Indication: Chemotherapy
     Dosage: 3.75 MILLIGRAM, QD
     Route: 058
     Dates: start: 20240718, end: 20240718
  2. LETROZOLE [Suspect]
     Active Substance: LETROZOLE
     Indication: Chemotherapy
     Dosage: 2.5 MILLIGRAM, QD
     Route: 048
     Dates: start: 20240718, end: 20240811
  3. PALBOCICLIB [Suspect]
     Active Substance: PALBOCICLIB
     Indication: Chemotherapy
     Dosage: 125 MILLIGRAM, QD
     Route: 048
     Dates: start: 20240718, end: 20240807

REACTIONS (1)
  - Myelosuppression [Unknown]

NARRATIVE: CASE EVENT DATE: 20240812
